FAERS Safety Report 10374166 (Version 3)
Quarter: 2014Q4

REPORT INFORMATION
  Report Type: Spontaneous
  Country: MX (occurrence: MX)
  Receive Date: 20140811
  Receipt Date: 20141031
  Transmission Date: 20150528
  Serious: Yes (Death, Hospitalization, Other)
  Sender: FDA-Public Use
  Company Number: MX-ORION CORPORATION ORION PHARMA-ENTC2013-0017

PATIENT
  Age: 65 Year
  Sex: Female

DRUGS (11)
  1. CESTRID [Concomitant]
     Indication: HYPERTENSION
     Route: 065
  2. STALEVO [Suspect]
     Active Substance: CARBIDOPA\ENTACAPONE\LEVODOPA
     Route: 048
  3. BEDOYECTA [Concomitant]
     Indication: VITAMIN SUPPLEMENTATION
     Route: 065
  4. ANAPSIQUE [Concomitant]
     Indication: SLEEP DISORDER
     Route: 065
  5. ZESTRIL [Concomitant]
     Active Substance: LISINOPRIL
     Dosage: 1 DAILY (UNITS WERE NOT PROVIDED)
     Route: 065
     Dates: start: 1994
  6. STALEVO [Suspect]
     Active Substance: CARBIDOPA\ENTACAPONE\LEVODOPA
     Indication: PARKINSON^S DISEASE
     Dosage: STRENGTH: 150/37.5/200 MG
     Route: 048
  7. STALEVO [Suspect]
     Active Substance: CARBIDOPA\ENTACAPONE\LEVODOPA
     Indication: MULTIPLE SYSTEM ATROPHY
     Dosage: STRENGTH: 150/37.5/200 MG
     Route: 065
  8. INSOGEN PLUS [Concomitant]
     Indication: DIABETES MELLITUS
     Dosage: 1 DAILY (UNITS WERE NOT PROVIDED)
     Route: 065
     Dates: start: 1987
  9. BEKUNIS [Concomitant]
     Indication: CONSTIPATION
     Route: 065
  10. ANAPSIQUE [Concomitant]
     Indication: ANXIETY DISORDER
  11. STALEVO [Suspect]
     Active Substance: CARBIDOPA\ENTACAPONE\LEVODOPA
     Dosage: 1 TABLET IN THE MORNING, HALF TABLET AT 13:00 H AND HALF TABLET AT 18:00 H; STRENGTH: 150/37.5/200 M
     Route: 048

REACTIONS (10)
  - Asphyxia [Fatal]
  - Near drowning [Not Recovered/Not Resolved]
  - Dysphagia [Not Recovered/Not Resolved]
  - Wrong technique in drug usage process [Not Recovered/Not Resolved]
  - Syncope [Recovered/Resolved]
  - Productive cough [Unknown]
  - Loss of consciousness [Recovered/Resolved]
  - Feeding disorder [Unknown]
  - Choking [Not Recovered/Not Resolved]
  - Blood pressure decreased [Recovered/Resolved]

NARRATIVE: CASE EVENT DATE: 20141009
